FAERS Safety Report 6982657-4 (Version None)
Quarter: 2010Q3

REPORT INFORMATION
  Report Type: 
  Country: None (occurrence: None)
  Receive Date: 20100914
  Receipt Date: 20100330
  Transmission Date: 20110219
  Serious: No
  Sender: FDA-Public Use
  Company Number: US-PFIZER INC-2010011079

PATIENT
  Sex: Female
  Weight: 68.9 kg

DRUGS (7)
  1. LYRICA [Suspect]
     Indication: HERPES ZOSTER
     Dosage: UNK
  2. LYRICA [Suspect]
     Indication: NEURALGIA
  3. GABAPENTIN [Suspect]
     Indication: POST HERPETIC NEURALGIA
     Dosage: 300 MG, 3X/DAY
     Route: 048
     Dates: start: 20091201
  4. GABAPENTIN [Suspect]
     Dosage: UNK, FOUR TIMES DAILY
  5. SYNTHROID [Concomitant]
     Indication: THYROID DISORDER
     Dosage: UNK
  6. HYZAAR [Concomitant]
     Dosage: UNK
  7. ALISKIREN [Concomitant]
     Dosage: UNK

REACTIONS (6)
  - CONSTIPATION [None]
  - DRUG INEFFECTIVE [None]
  - EATING DISORDER [None]
  - MALAISE [None]
  - POST HERPETIC NEURALGIA [None]
  - WEIGHT INCREASED [None]
